FAERS Safety Report 25908800 (Version 1)
Quarter: 2025Q4

REPORT INFORMATION
  Report Type: Spontaneous
  Country: EU (occurrence: EU)
  Receive Date: 20251011
  Receipt Date: 20251011
  Transmission Date: 20260118
  Serious: Yes (Hospitalization, Other)
  Sender: CASPER PHARMA
  Company Number: EU-CASPERPHARMA-PT-2025RISLIT00494

PATIENT
  Age: 9 Decade
  Sex: Female

DRUGS (2)
  1. NITROFURANTOIN [Suspect]
     Active Substance: NITROFURANTOIN
     Indication: Urinary tract infection
     Route: 065
  2. NITROFURANTOIN [Suspect]
     Active Substance: NITROFURANTOIN
     Indication: Infection prophylaxis

REACTIONS (8)
  - Autoimmune hepatitis [Recovered/Resolved]
  - Hepatic failure [Recovered/Resolved]
  - Liver injury [Recovered/Resolved]
  - Orthostatic hypotension [Recovered/Resolved]
  - Nausea [Recovered/Resolved]
  - Choluria [Recovered/Resolved]
  - Jaundice [Recovered/Resolved]
  - Oedema peripheral [Recovered/Resolved]
